FAERS Safety Report 12262945 (Version 1)
Quarter: 2016Q2

REPORT INFORMATION
  Report Type: Spontaneous
  Country: US (occurrence: US)
  Receive Date: 20160413
  Receipt Date: 20160413
  Transmission Date: 20160815
  Serious: No
  Sender: FDA-Public Use
  Company Number: US-PFIZER INC-2016169155

PATIENT
  Age: 60 Year
  Sex: Female
  Weight: 54.43 kg

DRUGS (2)
  1. LETROZOLE. [Concomitant]
     Active Substance: LETROZOLE
     Indication: BREAST CANCER METASTATIC
     Dosage: UNK
     Dates: start: 2015
  2. IBRANCE [Suspect]
     Active Substance: PALBOCICLIB
     Indication: BREAST CANCER METASTATIC
     Dosage: UNK, CYCLIC (ONCE DAILY FOR 3 WEEKS ON AND 1 WEEK OFF)
     Route: 048
     Dates: start: 201602

REACTIONS (4)
  - White blood cell count decreased [Recovering/Resolving]
  - Trichorrhexis [Not Recovered/Not Resolved]
  - Neutrophil count decreased [Recovering/Resolving]
  - Alopecia [Not Recovered/Not Resolved]

NARRATIVE: CASE EVENT DATE: 201603
